FAERS Safety Report 21936369 (Version 3)
Quarter: 2023Q1

REPORT INFORMATION
  Report Type: Report from Study
  Country: US (occurrence: US)
  Receive Date: 20230201
  Receipt Date: 20230303
  Transmission Date: 20230417
  Serious: No
  Sender: FDA-Public Use
  Company Number: US-002147023-NVSC2023US021322

PATIENT
  Sex: Female

DRUGS (2)
  1. KISQALI [Suspect]
     Active Substance: RIBOCICLIB
     Indication: Product used for unknown indication
     Dosage: 600 MG, QD
     Route: 065
  2. KISQALI [Suspect]
     Active Substance: RIBOCICLIB
     Dosage: 400 MG, QD
     Route: 065

REACTIONS (7)
  - Gastrooesophageal reflux disease [Unknown]
  - Heart rate increased [Unknown]
  - Malaise [Unknown]
  - Pruritus [Unknown]
  - Alopecia [Unknown]
  - Dyspnoea [Unknown]
  - Constipation [Unknown]
